FAERS Safety Report 6821647-9 (Version None)
Quarter: 2010Q3

REPORT INFORMATION
  Report Type: 
  Country: None (occurrence: None)
  Receive Date: 20100707
  Receipt Date: 20090604
  Transmission Date: 20110219
  Serious: No
  Sender: FDA-Public Use
  Company Number: US-PFIZER INC-2009155470

PATIENT
  Sex: Male
  Weight: 60.771 kg

DRUGS (3)
  1. ZOLOFT [Suspect]
     Indication: ANXIETY
     Dosage: UNK
     Dates: start: 20081101
  2. ZOLOFT [Suspect]
     Indication: DEPRESSION
  3. NEXIUM [Concomitant]
     Dosage: UNK

REACTIONS (2)
  - BRUXISM [None]
  - WRONG TECHNIQUE IN DRUG USAGE PROCESS [None]
